FAERS Safety Report 14199316 (Version 2)
Quarter: 2017Q4

REPORT INFORMATION
  Report Type: Other
  Country: CA (occurrence: CA)
  Receive Date: 20171117
  Receipt Date: 20171220
  Transmission Date: 20180321
  Serious: Yes (Other)
  Sender: FDA-Public Use
  Company Number: CA-APOTEX-2017AP021209

PATIENT
  Age: 49 Year
  Sex: Female
  Weight: 67.57 kg

DRUGS (7)
  1. APO-DULOXETINE [Suspect]
     Active Substance: DULOXETINE
     Indication: AFFECTIVE DISORDER
  2. APO-DULOXETINE [Suspect]
     Active Substance: DULOXETINE
     Indication: PAIN
     Dosage: 60 MG, QD
     Route: 048
  3. LOSEC [Concomitant]
     Active Substance: OMEPRAZOLE
     Indication: PRODUCT USED FOR UNKNOWN INDICATION
     Dosage: UNK
     Route: 065
  4. PROCTOSEDYL [Concomitant]
     Active Substance: DIBUCAINE HYDROCHLORIDE\HYDROCORTISONE
     Indication: PRODUCT USED FOR UNKNOWN INDICATION
     Dosage: UNK
     Route: 065
  5. APO-DULOXETINE [Suspect]
     Active Substance: DULOXETINE
     Indication: ANXIETY
  6. IMOVANE [Concomitant]
     Active Substance: ZOPICLONE
     Indication: PRODUCT USED FOR UNKNOWN INDICATION
     Dosage: UNK
     Route: 065
  7. MIRENA [Concomitant]
     Active Substance: LEVONORGESTREL
     Indication: PRODUCT USED FOR UNKNOWN INDICATION
     Dosage: UNK
     Route: 065

REACTIONS (8)
  - Affect lability [Unknown]
  - Therapeutic response changed [Unknown]
  - Tremor [Unknown]
  - Hallucination, auditory [Unknown]
  - Vomiting [Unknown]
  - Condition aggravated [Unknown]
  - Diarrhoea [Unknown]
  - Product substitution issue [Unknown]
